FAERS Safety Report 26092614 (Version 1)
Quarter: 2025Q4

REPORT INFORMATION
  Report Type: Spontaneous
  Country: CN (occurrence: CN)
  Receive Date: 20251126
  Receipt Date: 20251126
  Transmission Date: 20260117
  Serious: Yes (Hospitalization, Other)
  Sender: ALKEM
  Company Number: None

PATIENT
  Age: 42 Year
  Sex: Male

DRUGS (3)
  1. MYCOPHENOLATE MOFETIL [Suspect]
     Active Substance: MYCOPHENOLATE MOFETIL
     Indication: Prophylaxis against transplant rejection
     Dosage: 360 MILLIGRAM, BID (EVERY 12 HOUR), (MYFORTIC)
     Route: 065
  2. TACROLIMUS [Suspect]
     Active Substance: TACROLIMUS
     Indication: Prophylaxis against transplant rejection
     Dosage: 1 MILLIGRAM, BID (EVERY 12 HOUR)
     Route: 065
  3. METHYLPREDNISOLONE [Suspect]
     Active Substance: METHYLPREDNISOLONE
     Indication: Prophylaxis against transplant rejection
     Dosage: 4 MILLIGRAM, QD (EVERY 1 DAY)
     Route: 065

REACTIONS (2)
  - Chronic hepatitis [Recovered/Resolved]
  - Hepatitis E [Recovered/Resolved]

NARRATIVE: CASE EVENT DATE: 20210401
